FAERS Safety Report 10395500 (Version 9)
Quarter: 2017Q3

REPORT INFORMATION
  Report Type: Report from Study
  Country: CA (occurrence: CA)
  Receive Date: 20140820
  Receipt Date: 20170822
  Transmission Date: 20171127
  Serious: Yes (Hospitalization, Other)
  Sender: FDA-Public Use
  Company Number: CA-ROCHE-1130444

PATIENT
  Age: 80 Year
  Sex: Female

DRUGS (13)
  1. PLAQUENIL [Concomitant]
     Active Substance: HYDROXYCHLOROQUINE SULFATE
  2. ACETAMINOPHEN. [Concomitant]
     Active Substance: ACETAMINOPHEN
     Indication: PREMEDICATION
     Route: 048
     Dates: start: 20101126, end: 20170329
  3. FERROUS SULFATE. [Concomitant]
     Active Substance: FERROUS SULFATE
  4. OMEPRAZOLE. [Concomitant]
     Active Substance: OMEPRAZOLE
  5. PAROXETINE. [Concomitant]
     Active Substance: PAROXETINE
  6. RITUXAN [Suspect]
     Active Substance: RITUXIMAB
     Indication: RHEUMATOID ARTHRITIS
     Dosage: LAST DOSE ON 27/FEB/2014.
     Route: 042
     Dates: start: 20101126, end: 20170329
  7. FELODIPINE. [Concomitant]
     Active Substance: FELODIPINE
  8. PREDNISONE. [Concomitant]
     Active Substance: PREDNISONE
  9. FENOFIBRATE. [Concomitant]
     Active Substance: FENOFIBRATE
  10. ATENOLOL. [Concomitant]
     Active Substance: ATENOLOL
  11. METHYLPREDNISOLONE. [Concomitant]
     Active Substance: METHYLPREDNISOLONE
     Indication: PREMEDICATION
     Route: 042
     Dates: start: 20101126, end: 20170329
  12. DIPHENHYDRAMINE HCL [Concomitant]
     Active Substance: DIPHENHYDRAMINE HYDROCHLORIDE
     Indication: PREMEDICATION
     Route: 048
     Dates: start: 20101126, end: 20170329
  13. METFORMIN [Concomitant]
     Active Substance: METFORMIN HYDROCHLORIDE

REACTIONS (18)
  - Cardiac failure congestive [Unknown]
  - Occult blood positive [Unknown]
  - Acute kidney injury [Unknown]
  - Nephropathy [Unknown]
  - Anaemia [Unknown]
  - Haemoglobin decreased [Unknown]
  - Seizure [Unknown]
  - Pneumonia [Unknown]
  - Lactic acidosis [Unknown]
  - Bacterial test positive [Unknown]
  - Hypercalcaemia [Unknown]
  - Genitourinary symptom [Unknown]
  - Asthenia [Unknown]
  - Cardiac failure congestive [Unknown]
  - Urinary tract infection [Not Recovered/Not Resolved]
  - Anal incontinence [Unknown]
  - Finger deformity [Unknown]
  - Clostridium difficile infection [Unknown]

NARRATIVE: CASE EVENT DATE: 2012
